FAERS Safety Report 22192802 (Version 3)
Quarter: 2023Q2

REPORT INFORMATION
  Report Type: Spontaneous
  Country: US (occurrence: US)
  Receive Date: 20230410
  Receipt Date: 20230508
  Transmission Date: 20230722
  Serious: No
  Sender: FDA-Public Use
  Company Number: US-BAYER-2023A045987

PATIENT
  Age: 34 Year
  Sex: Male

DRUGS (2)
  1. JIVI [Suspect]
     Active Substance: DAMOCTOCOG ALFA PEGOL
     Dosage: 2600 UNITS (+/-10%)
  2. JIVI [Suspect]
     Active Substance: DAMOCTOCOG ALFA PEGOL
     Dosage: 1 DF, EXTRA DOSE FOR THE HAND INJURY TREATMENT

REACTIONS (2)
  - Joint injury [None]
  - Limb injury [None]

NARRATIVE: CASE EVENT DATE: 20230330
